FAERS Safety Report 16900747 (Version 1)
Quarter: 2019Q4

REPORT INFORMATION
  Report Type: Report from Study
  Country: US (occurrence: US)
  Receive Date: 20191009
  Receipt Date: 20191009
  Transmission Date: 20200122
  Serious: Yes (Hospitalization)
  Sender: FDA-Public Use
  Company Number: US-GILEAD-2019-0432295

PATIENT
  Sex: Male

DRUGS (15)
  1. VITAMINS NOS [Concomitant]
     Active Substance: VITAMINS
  2. DILTIAZEM. [Concomitant]
     Active Substance: DILTIAZEM
  3. MIRALAX [Concomitant]
     Active Substance: POLYETHYLENE GLYCOL 3350
  4. ELIQUIS [Concomitant]
     Active Substance: APIXABAN
  5. INCRUSE ELLIPTA [Concomitant]
     Active Substance: UMECLIDINIUM BROMIDE
  6. CRESTOR [Concomitant]
     Active Substance: ROSUVASTATIN CALCIUM
  7. FERROUS SULFATE. [Concomitant]
     Active Substance: FERROUS SULFATE
  8. NEPHRO-VITE RX [Concomitant]
  9. LEVOTHYROXINE SODIUM. [Concomitant]
     Active Substance: LEVOTHYROXINE SODIUM
  10. BIOTIN [Concomitant]
     Active Substance: BIOTIN
  11. ULORIC [Concomitant]
     Active Substance: FEBUXOSTAT
  12. SODIUM BICARBONATE. [Concomitant]
     Active Substance: SODIUM BICARBONATE
  13. GABAPENTIN. [Concomitant]
     Active Substance: GABAPENTIN
  14. AZTREONAM LYSINE [Suspect]
     Active Substance: AZTREONAM LYSINE
     Indication: PSEUDOMONAS INFECTION
     Dosage: 75 MG, TIDFOR 28 DAYS ON THEN 28 DAYS OFF
  15. FUROSEMIDE. [Concomitant]
     Active Substance: FUROSEMIDE

REACTIONS (2)
  - Oxygen saturation decreased [Unknown]
  - Off label use [Unknown]
